FAERS Safety Report 8268378-9 (Version None)
Quarter: 2012Q2

REPORT INFORMATION
  Report Type: 
  Country: None (occurrence: None)
  Receive Date: 20120409
  Receipt Date: 20120401
  Transmission Date: 20120825
  Serious: Yes (Disabling)
  Sender: FDA-Public Use
  Company Number: BB-ASTRAZENECA-2012SE21573

PATIENT
  Age: 60 Year

DRUGS (1)
  1. CRESTOR [Suspect]
     Indication: HYPERCHOLESTEROLAEMIA
     Route: 048
     Dates: start: 20120314, end: 20120328

REACTIONS (1)
  - EXTRASYSTOLES [None]
